FAERS Safety Report 7550558-9 (Version None)
Quarter: 2011Q2

REPORT INFORMATION
  Report Type: 
  Country: None (occurrence: None)
  Receive Date: 20110616
  Receipt Date: 20110607
  Transmission Date: 20111010
  Serious: Yes (Hospitalization, Other)
  Sender: FDA-Public Use
  Company Number: US-BIOGENIDEC-2011BI012359

PATIENT
  Age: 69 Year
  Sex: Male

DRUGS (11)
  1. SPIRIVA [Concomitant]
     Dates: start: 20080101
  2. ASACOL [Concomitant]
     Indication: CROHN'S DISEASE
  3. ALLOPURINOL [Concomitant]
     Indication: BLOOD URIC ACID INCREASED
     Dates: start: 19860101
  4. NIASPAN [Concomitant]
     Indication: BLOOD CHOLESTEROL INCREASED
     Route: 048
     Dates: start: 20010101
  5. CLARINEX [Concomitant]
     Indication: SEASONAL ALLERGY
     Dates: start: 20030101
  6. TYSABRI [Suspect]
     Indication: CROHN'S DISEASE
     Route: 042
     Dates: start: 20090429, end: 20110209
  7. ALTACE [Concomitant]
     Indication: HYPERTENSION
     Route: 048
     Dates: start: 20010101
  8. STEROIDS [Concomitant]
     Route: 045
  9. WELCHOL [Concomitant]
     Indication: BLOOD CHOLESTEROL INCREASED
     Route: 048
  10. RANITIDINE [Concomitant]
     Indication: CROHN'S DISEASE
  11. ASPIRIN [Concomitant]
     Route: 048

REACTIONS (4)
  - NON-SMALL CELL LUNG CANCER [None]
  - NEUROPATHY PERIPHERAL [None]
  - PROSTATOMEGALY [None]
  - DIABETES MELLITUS [None]
